FAERS Safety Report 26211876 (Version 1)
Quarter: 2025Q4

REPORT INFORMATION
  Report Type: Spontaneous
  Country: JP (occurrence: JP)
  Receive Date: 20251230
  Receipt Date: 20251230
  Transmission Date: 20260117
  Serious: Yes (Hospitalization)
  Sender: DOUGLAS PHARMACEUTICALS
  Company Number: JP-DOUGLAS PHARMACEUTICALS US-2025DGL04789

PATIENT
  Age: 4 Decade
  Sex: Male

DRUGS (4)
  1. CLOZAPINE [Suspect]
     Active Substance: CLOZAPINE
     Indication: Schizophrenia
     Dosage: 550 MG, 1X/DAY
     Route: 048
  2. CLOZAPINE [Suspect]
     Active Substance: CLOZAPINE
     Dosage: 500 MG, 1X/DAY
     Route: 048
  3. LORAZEPAM [Suspect]
     Active Substance: LORAZEPAM
     Indication: Schizophrenia
     Dosage: 5 MG, 1X/DAY
  4. LORAZEPAM [Suspect]
     Active Substance: LORAZEPAM
     Dosage: 6 MG, 1X/DAY

REACTIONS (5)
  - Withdrawal catatonia [Recovered/Resolved]
  - Respiratory failure [Recovered/Resolved]
  - Pneumonia aspiration [Recovered/Resolved]
  - Intestinal pseudo-obstruction [Recovered/Resolved]
  - Pneumonia [Recovered/Resolved]
